FAERS Safety Report 24691936 (Version 1)
Quarter: 2024Q4

REPORT INFORMATION
  Report Type: Spontaneous
  Country: US (occurrence: US)
  Receive Date: 20241203
  Receipt Date: 20241203
  Transmission Date: 20250115
  Serious: Yes (Hospitalization, Other)
  Sender: ALEXION PHARMACEUTICALS
  Company Number: US-ASTRAZENECA-202411USA025209US

PATIENT
  Age: 62 Year
  Weight: 57.6 kg

DRUGS (16)
  1. FASLODEX [Suspect]
     Active Substance: FULVESTRANT
     Indication: Bone cancer metastatic
     Dosage: UNK
  2. FASLODEX [Suspect]
     Active Substance: FULVESTRANT
     Dosage: UNK
  3. FASLODEX [Suspect]
     Active Substance: FULVESTRANT
     Dosage: UNK
  4. FASLODEX [Suspect]
     Active Substance: FULVESTRANT
     Dosage: UNK
  5. IBRANCE [Suspect]
     Active Substance: PALBOCICLIB
     Indication: Breast cancer metastatic
     Dosage: 125 MG, CYCLIC (FOR 21 DAYS THEN OFF A WEEK AND RESTART)
     Route: 065
  6. IBRANCE [Suspect]
     Active Substance: PALBOCICLIB
     Dosage: 125 MG, CYCLIC (FOR 21 DAYS THEN OFF A WEEK AND RESTART)
  7. IBRANCE [Suspect]
     Active Substance: PALBOCICLIB
     Dosage: 100 MG (FOR 21 DAYS THEN OFF A WEEK AND RESTART)
     Route: 065
  8. IBRANCE [Suspect]
     Active Substance: PALBOCICLIB
     Dosage: 100 MG (FOR 21 DAYS THEN OFF A WEEK AND RESTART)
  9. IBRANCE [Suspect]
     Active Substance: PALBOCICLIB
     Dosage: 75 MG,  TAKE 1 TAB FOR 21 DAYS, THEN OFF 7 DAYS
     Route: 065
  10. IBRANCE [Suspect]
     Active Substance: PALBOCICLIB
     Dosage: 75 MG,  TAKE 1 TAB FOR 21 DAYS, THEN OFF 7 DAYS
  11. XGEVA [Concomitant]
     Active Substance: DENOSUMAB
     Indication: Bone cancer metastatic
     Dosage: UNK
  12. XGEVA [Concomitant]
     Active Substance: DENOSUMAB
     Dosage: UNK
  13. ZARXIO [Concomitant]
     Active Substance: FILGRASTIM-SNDZ
     Indication: Full blood count abnormal
     Dosage: UNK
  14. ZARXIO [Concomitant]
     Active Substance: FILGRASTIM-SNDZ
     Dosage: UNK
     Route: 065
  15. PROCRIT [Concomitant]
     Active Substance: ERYTHROPOIETIN
  16. PROCRIT [Concomitant]
     Active Substance: ERYTHROPOIETIN
     Route: 065

REACTIONS (13)
  - White blood cell count increased [Not Recovered/Not Resolved]
  - Haemoglobin decreased [Unknown]
  - Blood potassium decreased [Unknown]
  - Blood sodium decreased [Unknown]
  - Pyrexia [Unknown]
  - Laboratory test abnormal [Recovered/Resolved]
  - Full blood count decreased [Unknown]
  - Malaise [Unknown]
  - Decreased appetite [Unknown]
  - Weight decreased [Not Recovered/Not Resolved]
  - Platelet count decreased [Unknown]
  - Neutrophil count decreased [Unknown]
  - Injection site swelling [Unknown]
